FAERS Safety Report 8153313-4 (Version None)
Quarter: 2012Q1

REPORT INFORMATION
  Report Type: 
  Country: None (occurrence: None)
  Receive Date: 20120215
  Receipt Date: 20120131
  Transmission Date: 20120608
  Serious: Yes (Other)
  Sender: FDA-Public Use
  Company Number: JPI-P-019064

PATIENT
  Age: 34 Year
  Sex: Male
  Weight: 83.9154 kg

DRUGS (8)
  1. DULOXETINE HYDROCHLORIDE [Concomitant]
  2. LOVASTATIN [Concomitant]
  3. GABAPENTIN [Concomitant]
  4. XYREM [Suspect]
     Indication: MYOCLONUS
     Dosage: SEE IMAGE
     Route: 048
     Dates: start: 20080602
  5. XYREM [Suspect]
     Indication: MYOCLONUS
     Dosage: SEE IMAGE
     Route: 048
     Dates: end: 20120105
  6. XYREM [Suspect]
     Indication: MYOCLONUS
     Dosage: SEE IMAGE
     Route: 048
     Dates: start: 20070212
  7. XYREM [Suspect]
     Indication: MYOCLONUS
     Dosage: SEE IMAGE
     Route: 048
     Dates: start: 20120101
  8. QUETIAPINE FUMARATE [Concomitant]

REACTIONS (4)
  - LIGAMENT RUPTURE [None]
  - MUSCLE RUPTURE [None]
  - FALL [None]
  - LOWER LIMB FRACTURE [None]
